FAERS Safety Report 7481471-3 (Version None)
Quarter: 2011Q2

REPORT INFORMATION
  Report Type: 
  Country: None (occurrence: None)
  Receive Date: 20110516
  Receipt Date: 20110502
  Transmission Date: 20111010
  Serious: Yes (Other)
  Sender: FDA-Public Use
  Company Number: PHHY2011US34281

PATIENT
  Sex: Female

DRUGS (13)
  1. ASPIRIN [Concomitant]
  2. SIMVASTATIN [Concomitant]
  3. CALCIUM WITH VITAMIN D [Concomitant]
  4. CENTRUM [Concomitant]
  5. LISINOPRIL [Concomitant]
  6. SELENIUM [Concomitant]
  7. SYNTHROID [Concomitant]
  8. RECLAST [Suspect]
     Dosage: 5 MG, ANNUALLY
     Route: 042
     Dates: start: 20081001
  9. RECLAST [Suspect]
     Dosage: 5 MG, ANNUALLY
     Route: 042
     Dates: start: 20101101
  10. LYSINE [Concomitant]
  11. VITAMINS [Concomitant]
  12. RECLAST [Suspect]
     Dosage: 5 MG, ANNUALLY
     Route: 042
     Dates: start: 20091101
  13. MULTIVITAMIN [Concomitant]

REACTIONS (7)
  - OSTEOARTHRITIS [None]
  - SENILE OSTEOPOROSIS [None]
  - GROIN PAIN [None]
  - STRESS FRACTURE [None]
  - MUSCLE SPASMS [None]
  - PAIN IN EXTREMITY [None]
  - HERNIA [None]
